FAERS Safety Report 5348853-7 (Version None)
Quarter: 2007Q2

REPORT INFORMATION
  Report Type: 
  Country: None (occurrence: None)
  Receive Date: 20070605
  Receipt Date: 20070525
  Transmission Date: 20071010
  Serious: Yes (Hospitalization)
  Sender: FDA-Public Use
  Company Number: 2007BI011415

PATIENT
  Age: 41 Year
  Sex: Female
  Weight: 81.6475 kg

DRUGS (4)
  1. AVONEX [Suspect]
     Indication: MULTIPLE SCLEROSIS
     Dosage: 30 UG QW IM
     Route: 030
     Dates: start: 19990101
  2. AVONEX [Suspect]
     Indication: MULTIPLE SCLEROSIS
     Dosage: 30 UG QW IM
     Route: 030
     Dates: start: 20070301, end: 20070521
  3. ETODOLAC [Concomitant]
  4. FLEXERIL [Concomitant]

REACTIONS (6)
  - DELIRIUM [None]
  - GAIT DISTURBANCE [None]
  - HYPERVENTILATION [None]
  - INJECTION SITE ERYTHEMA [None]
  - NEURALGIA [None]
  - PAIN [None]
